FAERS Safety Report 18800786 (Version 2)
Quarter: 2021Q1

REPORT INFORMATION
  Report Type: Spontaneous
  Country: JP (occurrence: JP)
  Receive Date: 20210128
  Receipt Date: 20210203
  Transmission Date: 20210419
  Serious: Yes (Hospitalization)
  Sender: FDA-Public Use
  Company Number: JP-DSJP-DSJ-2021-102087

PATIENT
  Age: 8 Decade
  Sex: Female

DRUGS (13)
  1. NOVOLIN R [Concomitant]
     Active Substance: INSULIN HUMAN
     Dosage: 3 IU, TID
     Route: 065
  2. TRESIBA [Concomitant]
     Active Substance: INSULIN DEGLUDEC
     Dosage: 5 IU, QD
     Route: 065
  3. OLMETEC OD [Suspect]
     Active Substance: OLMESARTAN MEDOXOMIL
     Indication: PRODUCT USED FOR UNKNOWN INDICATION
     Dosage: UNK
     Route: 048
     Dates: start: 20201023, end: 20201112
  4. NOVOLIN R [Concomitant]
     Active Substance: INSULIN HUMAN
     Dosage: 8 IU, TID, IN THE MORNING, NOON AND THE EVENING
     Route: 065
  5. FEBUXOSTAT. [Concomitant]
     Active Substance: FEBUXOSTAT
     Dosage: UNK
     Route: 065
     Dates: start: 20201023, end: 20201112
  6. CALCIUM POLYSTYRENE SULFONATE [Concomitant]
     Active Substance: CALCIUM POLYSTYRENE SULFONATE
     Dosage: 15G/DAY
     Route: 065
     Dates: start: 20201023, end: 20201112
  7. TOLVAPTAN [Concomitant]
     Active Substance: TOLVAPTAN
     Dosage: 15MG/DAY
     Route: 065
     Dates: start: 20201112, end: 20201117
  8. TRICHLORMETHIAZIDE [Concomitant]
     Active Substance: TRICHLORMETHIAZIDE
     Dosage: UNK
     Route: 065
     Dates: start: 20201023, end: 20201112
  9. CARPERITIDE [Concomitant]
     Active Substance: CARPERITIDE
     Dosage: 4000UG/DAY
     Route: 065
     Dates: start: 20201020, end: 20201026
  10. TOLVAPTAN [Concomitant]
     Active Substance: TOLVAPTAN
     Dosage: 7.5MG/DAY
     Route: 065
     Dates: start: 20201029, end: 20201111
  11. TRESIBA [Concomitant]
     Active Substance: INSULIN DEGLUDEC
     Dosage: 10 IU, QD, IN THE EVENING
     Route: 065
  12. OLMESARTAN OD TABLETS ?DSEP? [Suspect]
     Active Substance: OLMESARTAN MEDOXOMIL
     Indication: PRODUCT USED FOR UNKNOWN INDICATION
     Dosage: UNK
     Route: 048
     Dates: start: 20201023, end: 20201112
  13. ROSUVASTATIN                       /01588602/ [Concomitant]
     Active Substance: ROSUVASTATIN CALCIUM
     Dosage: UNK
     Route: 065
     Dates: start: 20201023, end: 20201112

REACTIONS (1)
  - Cardiac arrest [Recovering/Resolving]
